FAERS Safety Report 7443139-9 (Version None)
Quarter: 2011Q2

REPORT INFORMATION
  Report Type: 
  Country: None (occurrence: None)
  Receive Date: 20110428
  Receipt Date: 20110426
  Transmission Date: 20111010
  Serious: Yes (Life-Threatening, Hospitalization, Disabling, Other)
  Sender: FDA-Public Use
  Company Number: A0893125A

PATIENT
  Sex: Male
  Weight: 104.5 kg

DRUGS (4)
  1. HYZAAR [Concomitant]
  2. PLAVIX [Concomitant]
     Dosage: 75MG PER DAY
  3. AVANDIA [Suspect]
     Indication: DIABETES MELLITUS
     Route: 048
     Dates: end: 20100601
  4. GLUCOTROL [Concomitant]

REACTIONS (5)
  - CEREBROVASCULAR ACCIDENT [None]
  - MYOCARDIAL INFARCTION [None]
  - CARDIAC MURMUR [None]
  - AORTIC STENOSIS [None]
  - AORTIC VALVE REPLACEMENT [None]
